FAERS Safety Report 16540774 (Version 1)
Quarter: 2019Q3

REPORT INFORMATION
  Report Type: Spontaneous
  Country: US (occurrence: US)
  Receive Date: 20190707
  Receipt Date: 20190707
  Transmission Date: 20191004
  Serious: Yes (Hospitalization)
  Sender: FDA-Public Use
  Company Number: None

PATIENT
  Age: 40 Year
  Sex: Female
  Weight: 58.5 kg

DRUGS (1)
  1. KYBELLA [Suspect]
     Active Substance: DEOXYCHOLIC ACID
     Indication: WEIGHT DECREASED
     Dates: start: 20190329

REACTIONS (4)
  - Osteomyelitis [None]
  - Injection site necrosis [None]
  - Skin fissures [None]
  - Skin infection [None]

NARRATIVE: CASE EVENT DATE: 20190402
